FAERS Safety Report 7633912-6 (Version None)
Quarter: 2011Q3

REPORT INFORMATION
  Report Type: 
  Country: None (occurrence: None)
  Receive Date: 20110725
  Receipt Date: 20110717
  Transmission Date: 20111222
  Serious: Yes (Hospitalization)
  Sender: FDA-Public Use
  Company Number: US-ABBOTT-11P-163-0840033-00

PATIENT
  Age: 56 Year
  Sex: Male

DRUGS (12)
  1. TRIAMTERENE AND HYDROCHLOROTHIAZIDE [Concomitant]
     Indication: HYPERTENSION
     Dosage: 37.5/25
  2. PROAIR HFA [Concomitant]
     Indication: ASTHMA
     Dosage: INHALER
  3. ZAFIRLUKAST [Concomitant]
     Indication: ASTHMA
  4. ASPIRIN [Concomitant]
     Indication: ARTHRALGIA
  5. PAROXETINE HCL [Concomitant]
     Indication: PRODUCT USED FOR UNKNOWN INDICATION
  6. NEXIUM [Concomitant]
     Indication: DYSPEPSIA
  7. NAPROSYN [Concomitant]
     Indication: ARTHRALGIA
  8. GLIMEPIRIDE [Concomitant]
     Indication: DIABETES MELLITUS
  9. TRAMADOL HCL [Concomitant]
     Indication: ARTHRITIS
  10. XOPENEX [Concomitant]
     Indication: ASTHMA
     Dosage: 1.25 LIQUID PER NEBULIZER DAILY
  11. HUMIRA [Suspect]
     Indication: CROHN'S DISEASE
     Dates: start: 20110201
  12. PREDNISONE [Concomitant]
     Indication: CROHN'S DISEASE

REACTIONS (4)
  - DRUG INEFFECTIVE [None]
  - RECTAL ABSCESS [None]
  - WEIGHT DECREASED [None]
  - DIARRHOEA [None]
